FAERS Safety Report 14964714 (Version 2)
Quarter: 2018Q2

REPORT INFORMATION
  Report Type: Spontaneous
  Country: US (occurrence: US)
  Receive Date: 20180601
  Receipt Date: 20180618
  Transmission Date: 20180711
  Serious: Yes (Hospitalization, Other)
  Sender: FDA-Public Use
  Company Number: US-ROCHE-2133055

PATIENT
  Age: 63 Year
  Sex: Female
  Weight: 88.98 kg

DRUGS (3)
  1. ACTEMRA [Suspect]
     Active Substance: TOCILIZUMAB
     Indication: RHEUMATOID ARTHRITIS
     Route: 058
     Dates: start: 20180502, end: 20180516
  2. MORPHINE [Suspect]
     Active Substance: MORPHINE
     Indication: PAIN
     Route: 065
     Dates: start: 201805
  3. ACTEMRA [Suspect]
     Active Substance: TOCILIZUMAB
     Indication: RHEUMATOID ARTHRITIS
     Dosage: ONGOING: UNKNOWN
     Route: 065
     Dates: start: 201803

REACTIONS (18)
  - Blood pressure increased [Not Recovered/Not Resolved]
  - Ill-defined disorder [Not Recovered/Not Resolved]
  - Swelling [Not Recovered/Not Resolved]
  - Burning sensation [Unknown]
  - Pain in extremity [Unknown]
  - Cerebrovascular accident [Recovered/Resolved]
  - Headache [Unknown]
  - Nausea [Unknown]
  - Diabetes mellitus [Unknown]
  - Oral disorder [Unknown]
  - Paralysis [Not Recovered/Not Resolved]
  - Skin discolouration [Unknown]
  - Peripheral swelling [Unknown]
  - Pyrexia [Unknown]
  - Pain [Unknown]
  - Gait inability [Not Recovered/Not Resolved]
  - Ill-defined disorder [Unknown]
  - Malaise [Unknown]

NARRATIVE: CASE EVENT DATE: 201805
